FAERS Safety Report 6314228-7 (Version None)
Quarter: 2009Q3

REPORT INFORMATION
  Report Type: 
  Country: None (occurrence: None)
  Receive Date: 20090817
  Receipt Date: 20090804
  Transmission Date: 20100115
  Serious: Yes (Other)
  Sender: FDA-Public Use
  Company Number: 2009AP003154

PATIENT

DRUGS (1)
  1. GABAPENTIN [Suspect]
     Indication: SPINAL COLUMN STENOSIS
     Dosage: 600 MG; QD; PO
     Route: 048

REACTIONS (7)
  - ABDOMINAL DISCOMFORT [None]
  - ASTHENIA [None]
  - DISTURBANCE IN ATTENTION [None]
  - GAIT DISTURBANCE [None]
  - HEART RATE INCREASED [None]
  - NERVOUSNESS [None]
  - PALPITATIONS [None]
